FAERS Safety Report 6847028-X (Version None)
Quarter: 2010Q3

REPORT INFORMATION
  Report Type: 
  Country: None (occurrence: None)
  Receive Date: 20100716
  Receipt Date: 20100709
  Transmission Date: 20110219
  Serious: Yes (Life-Threatening, Hospitalization)
  Sender: FDA-Public Use
  Company Number: ES-BIOGENIDEC-2010BI008824

PATIENT
  Age: 40 Year
  Sex: Male

DRUGS (10)
  1. TYSABRI [Suspect]
     Indication: MULTIPLE SCLEROSIS
     Route: 042
     Dates: start: 20080122, end: 20090520
  2. TYSABRI [Suspect]
     Route: 042
     Dates: start: 20091022
  3. ZOLPIDEM [Concomitant]
     Indication: INSOMNIA
     Route: 048
  4. CARBAMAZEPINE [Concomitant]
     Indication: EPILEPSY
     Route: 048
  5. GABAPENTINE [Concomitant]
     Indication: MULTIPLE SCLEROSIS
     Route: 048
  6. DIAZEPAM [Concomitant]
     Indication: ANXIETY
     Route: 048
  7. NOCTAMID [Concomitant]
     Indication: INSOMNIA
     Route: 048
  8. VANDRAL RETARD [Concomitant]
     Indication: DEPRESSION
     Route: 048
  9. REXER FLAS [Concomitant]
     Indication: DEPRESSION
     Route: 048
  10. OMEPRAZOLE [Concomitant]
     Indication: HIATUS HERNIA
     Route: 048

REACTIONS (1)
  - SUBILEUS [None]
